FAERS Safety Report 6402063-0 (Version None)
Quarter: 2009Q4

REPORT INFORMATION
  Report Type: 
  Country: None (occurrence: None)
  Receive Date: 20091015
  Receipt Date: 20091009
  Transmission Date: 20100525
  Serious: Yes (Hospitalization)
  Sender: FDA-Public Use
  Company Number: NL-PFIZER INC-2009260022

PATIENT

DRUGS (2)
  1. LYRICA [Suspect]
     Indication: NEURALGIA
     Dosage: 75 MG, UNK
     Route: 048
     Dates: start: 20090824, end: 20090824
  2. ZYRTEC [Concomitant]
     Indication: HYPERSENSITIVITY

REACTIONS (5)
  - ANAPHYLACTIC SHOCK [None]
  - HEADACHE [None]
  - MUSCLE SPASMS [None]
  - PARALYSIS [None]
  - SPEECH DISORDER [None]
